FAERS Safety Report 8263430-6 (Version None)
Quarter: 2012Q2

REPORT INFORMATION
  Report Type: 
  Country: None (occurrence: None)
  Receive Date: 20120405
  Receipt Date: 20120402
  Transmission Date: 20120825
  Serious: Yes (Life-Threatening)
  Sender: FDA-Public Use
  Company Number: US-JHP PHARMACEUTICALS, LLC-JHP201200024

PATIENT
  Age: 50 Year
  Sex: Female

DRUGS (1)
  1. DANTRIUM [Suspect]
     Indication: CEREBROVASCULAR SPASM
     Dosage: 1.25 MG/KG EVERY 6 HOURS, TOTAL=2072 MG
     Route: 042

REACTIONS (4)
  - ACUTE MYOCARDIAL INFARCTION [None]
  - INFUSION SITE IRRITATION [None]
  - OFF LABEL USE [None]
  - URINARY TRACT INFECTION [None]
